FAERS Safety Report 7967081-X (Version None)
Quarter: 2011Q4

REPORT INFORMATION
  Report Type: 
  Country: None (occurrence: None)
  Receive Date: 20111209
  Receipt Date: 20111129
  Transmission Date: 20120403
  Serious: Yes (Hospitalization)
  Sender: FDA-Public Use
  Company Number: 2011SP004015

PATIENT
  Sex: Female

DRUGS (5)
  1. LATUDA [Suspect]
     Route: 048
     Dates: start: 20110101
  2. ZYPREXA [Suspect]
     Dates: start: 20110101
  3. ALL OTHER THERAPEUTIC PRODUCTS [Concomitant]
     Dates: start: 20110101, end: 20110101
  4. ZYPREXA [Suspect]
     Dates: end: 20110101
  5. HALDOL [Suspect]
     Dates: end: 20110101

REACTIONS (2)
  - HALLUCINATION, AUDITORY [None]
  - INTENTIONAL OVERDOSE [None]
